FAERS Safety Report 16437571 (Version 1)
Quarter: 2019Q2

REPORT INFORMATION
  Report Type: Spontaneous
  Country: CA (occurrence: CA)
  Receive Date: 20190615
  Receipt Date: 20190615
  Transmission Date: 20190711
  Serious: Yes (Other)
  Sender: FDA-Public Use
  Company Number: CA-AUROBINDO-AUR-APL-2019-033164

PATIENT

DRUGS (2)
  1. SIMVASTATIN. [Suspect]
     Active Substance: SIMVASTATIN
     Indication: GLIOBLASTOMA
     Dosage: 10 MILLIGRAM/KILOGRAM, 1 EVERY 2 WEEKS
     Route: 065
  2. LOMUSTINE. [Suspect]
     Active Substance: LOMUSTINE
     Indication: GLIOBLASTOMA
     Dosage: 10 MILLIGRAM/KILOGRAM, 1 EVERY 2 WEEKS
     Route: 065

REACTIONS (1)
  - Malignant neoplasm progression [Unknown]
